FAERS Safety Report 6650087-0 (Version None)
Quarter: 2010Q1

REPORT INFORMATION
  Report Type: 
  Country: None (occurrence: None)
  Receive Date: 20100322
  Receipt Date: 20100309
  Transmission Date: 20100710
  Serious: Yes (Hospitalization, Other)
  Sender: FDA-Public Use
  Company Number: 680001J10FRA

PATIENT
  Age: 35 Year
  Sex: Female

DRUGS (6)
  1. PERGOVERIS (FIXED COMBINATION OF R-HFSH AND R-HLH) [Suspect]
     Indication: OVARIAN DISORDER
     Dosage: 150 IU, 1 IN 1 DAYS, 75%, 1 IN 1 DAYS, 150 IU, 1 IN 1 DAYS, 150 IU, 1 IN 1 DAYS,
     Dates: start: 20090101, end: 20090101
  2. PERGOVERIS (FIXED COMBINATION OF R-HFSH AND R-HLH) [Suspect]
     Indication: OVARIAN DISORDER
     Dosage: 150 IU, 1 IN 1 DAYS, 75%, 1 IN 1 DAYS, 150 IU, 1 IN 1 DAYS, 150 IU, 1 IN 1 DAYS,
     Dates: start: 20091101, end: 20090101
  3. PERGOVERIS (FIXED COMBINATION OF R-HFSH AND R-HLH) [Suspect]
     Indication: OVARIAN DISORDER
     Dosage: 150 IU, 1 IN 1 DAYS, 75%, 1 IN 1 DAYS, 150 IU, 1 IN 1 DAYS, 150 IU, 1 IN 1 DAYS,
     Dates: start: 20100101, end: 20100101
  4. PERGOVERIS (FIXED COMBINATION OF R-HFSH AND R-HLH) [Suspect]
     Indication: OVARIAN DISORDER
     Dosage: 150 IU, 1 IN 1 DAYS, 75%, 1 IN 1 DAYS, 150 IU, 1 IN 1 DAYS, 150 IU, 1 IN 1 DAYS,
     Dates: start: 20100101, end: 20100101
  5. PERGOVERIS (FIXED COMBINATION OF R-HFSH AND R-HLH) [Suspect]
     Indication: OVARIAN DISORDER
     Dosage: 150 IU, 1 IN 1 DAYS, 75%, 1 IN 1 DAYS, 150 IU, 1 IN 1 DAYS, 150 IU, 1 IN 1 DAYS,
     Dates: start: 20100213, end: 20100216
  6. OVIDREL [Suspect]
     Indication: INFERTILITY
     Dates: start: 20100129, end: 20100129

REACTIONS (4)
  - ABORTION SPONTANEOUS [None]
  - DRUG EXPOSURE DURING PREGNANCY [None]
  - INFECTION [None]
  - OVARIAN HYPERSTIMULATION SYNDROME [None]
